FAERS Safety Report 8602413-0 (Version None)
Quarter: 2012Q3

REPORT INFORMATION
  Report Type: 
  Country: None (occurrence: None)
  Receive Date: 20120817
  Receipt Date: 20120816
  Transmission Date: 20120928
  Serious: Yes (Other)
  Sender: FDA-Public Use
  Company Number: CH-PFIZER INC-2012201411

PATIENT
  Age: 45 Year
  Sex: Female

DRUGS (1)
  1. VARENICLINE [Suspect]
     Indication: SMOKING CESSATION THERAPY
     Dosage: MAXIMAL DOSE 2 MG DAILY
     Dates: start: 20110901, end: 20111201

REACTIONS (1)
  - EPICONDYLITIS [None]
